FAERS Safety Report 8877832 (Version 1)
Quarter: 2012Q4

REPORT INFORMATION
  Report Type: 
  Country: US (occurrence: US)
  Receive Date: 20121025
  Receipt Date: 20121025
  Transmission Date: 20130627
  Serious: No
  Sender: FDA-Public Use
  Company Number: US-AMGEN-USASP2012019925

PATIENT
  Age: 50 Year
  Sex: Female
  Weight: 77.1 kg

DRUGS (8)
  1. ENBREL [Suspect]
     Indication: PRODUCT USED FOR UNKNOWN INDICATION
     Dosage: 50 mg, qwk
     Route: 058
  2. METHOTREXATE [Concomitant]
     Dosage: 2.5 mg, UNK
  3. CELEBREX [Concomitant]
     Dosage: 50 mg, UNK
  4. VITAMIN D /00107901/ [Concomitant]
     Dosage: UNK
  5. ALEVE [Concomitant]
     Dosage: 220 mg, UNK
  6. MULTIVITAMIN AND MINERAL [Concomitant]
     Dosage: UNK
  7. OMEGA 3                            /01334101/ [Concomitant]
     Dosage: 1000 mg, UNK
  8. IRON [Concomitant]
     Dosage: 325 mg, UNK

REACTIONS (1)
  - Fatigue [Unknown]
